FAERS Safety Report 8507042 (Version 3)
Quarter: 2016Q3

REPORT INFORMATION
  Report Type: Spontaneous
  Country: US (occurrence: US)
  Receive Date: 20120412
  Receipt Date: 20160927
  Transmission Date: 20161109
  Serious: No
  Sender: FDA-Public Use
  Company Number: US-ASTRAZENECA-2011SE38855

PATIENT
  Sex: Male

DRUGS (4)
  1. PRILOSEC [Suspect]
     Active Substance: OMEPRAZOLE MAGNESIUM
     Indication: GASTROOESOPHAGEAL REFLUX DISEASE
     Route: 048
  2. PRILOSEC [Suspect]
     Active Substance: OMEPRAZOLE MAGNESIUM
     Indication: GASTROOESOPHAGEAL REFLUX DISEASE
     Route: 048
  3. NEXIUM [Suspect]
     Active Substance: ESOMEPRAZOLE MAGNESIUM
     Indication: GASTROOESOPHAGEAL REFLUX DISEASE
     Route: 048
  4. DEXILANT [Concomitant]
     Active Substance: DEXLANSOPRAZOLE

REACTIONS (10)
  - Dyspnoea paroxysmal nocturnal [Unknown]
  - Somnolence [Unknown]
  - Drug dose omission [Unknown]
  - Dyspnoea [Unknown]
  - Neck injury [Unknown]
  - Dizziness [Unknown]
  - Abdominal distension [Unknown]
  - Limb injury [Unknown]
  - Hypoaesthesia [Unknown]
  - Drug ineffective [Unknown]
